FAERS Safety Report 21095542 (Version 15)
Quarter: 2024Q4

REPORT INFORMATION
  Report Type: Spontaneous
  Country: US (occurrence: US)
  Receive Date: 20220718
  Receipt Date: 20241210
  Transmission Date: 20250115
  Serious: Yes (Other)
  Sender: PFIZER
  Company Number: US-PFIZER INC-PV202200023521

PATIENT
  Age: 68 Year
  Sex: Female
  Weight: 76.2 kg

DRUGS (4)
  1. IBRANCE [Suspect]
     Active Substance: PALBOCICLIB
     Dosage: 125 MG, 1 TABLET ONCE DAILY FOR 21 DAYS ON THEN 7 DAYS OFF, TAKE WITH OR WITHOUT FOOD
     Route: 048
  2. IBRANCE [Suspect]
     Active Substance: PALBOCICLIB
     Dosage: 125 MG
     Dates: start: 20230218
  3. IBRANCE [Suspect]
     Active Substance: PALBOCICLIB
     Dosage: 75 MG FOR 5 DAYS, 3 WEEKS ON AND 7 DAYS/1 WEEK OFF/ 75 MG 5 DAYS A WK, 3 WKS ON, 1 WK OF REGIMEN
  4. LETROZOLE [Concomitant]
     Active Substance: LETROZOLE
     Dosage: 2.5 MG, 1X/DAY

REACTIONS (12)
  - Pneumonia [Unknown]
  - Sinusitis [Not Recovered/Not Resolved]
  - Off label use [Unknown]
  - Allergic cough [Unknown]
  - Anaemia [Unknown]
  - Renal disorder [Unknown]
  - Hormone level abnormal [Unknown]
  - Bladder disorder [Unknown]
  - Illness [Unknown]
  - Full blood count abnormal [Unknown]
  - White blood cell count abnormal [Unknown]
  - Full blood count decreased [Not Recovered/Not Resolved]

NARRATIVE: CASE EVENT DATE: 20240101
